FAERS Safety Report 7812319-2 (Version None)
Quarter: 2011Q4

REPORT INFORMATION
  Report Type: 
  Country: None (occurrence: None)
  Receive Date: 20111013
  Receipt Date: 20111011
  Transmission Date: 20120403
  Serious: Yes (Hospitalization)
  Sender: FDA-Public Use
  Company Number: US-GLAXOSMITHKLINE-A0751235A

PATIENT
  Age: 38 Year
  Sex: Female
  Weight: 80 kg

DRUGS (4)
  1. LIPITOR [Concomitant]
  2. AVANDIA [Suspect]
     Indication: TYPE 2 DIABETES MELLITUS
     Dosage: 4MG TWICE PER DAY
     Route: 048
     Dates: start: 20050624, end: 20070201
  3. AVANDAMET [Suspect]
     Indication: TYPE 2 DIABETES MELLITUS
     Route: 048
     Dates: start: 20040730
  4. AVANDARYL [Suspect]
     Indication: TYPE 2 DIABETES MELLITUS
     Route: 048
     Dates: start: 20050306

REACTIONS (11)
  - BLOOD PRESSURE INCREASED [None]
  - CARDIAC FAILURE CONGESTIVE [None]
  - BLOOD CHOLESTEROL INCREASED [None]
  - HEART RATE INCREASED [None]
  - OEDEMA [None]
  - CHEST PAIN [None]
  - ARTHRITIS [None]
  - MYOCARDIAL INFARCTION [None]
  - CARDIAC DISORDER [None]
  - RASH GENERALISED [None]
  - DIABETES MELLITUS INADEQUATE CONTROL [None]
